FAERS Safety Report 14155043 (Version 1)
Quarter: 2017Q4

REPORT INFORMATION
  Report Type: Spontaneous
  Country: TH (occurrence: TH)
  Receive Date: 20171103
  Receipt Date: 20171103
  Transmission Date: 20180321
  Serious: Yes (Death)
  Sender: FDA-Public Use
  Company Number: TH-ENDO PHARMACEUTICALS INC-2017-005816

PATIENT
  Age: 31 Year
  Sex: Male
  Weight: 94 kg

DRUGS (1)
  1. PROPRANOLOL HYDROCHLORIDE TABLETS 40MG [Suspect]
     Active Substance: PROPRANOLOL HYDROCHLORIDE
     Indication: PRODUCT USED FOR UNKNOWN INDICATION
     Dosage: 6 G, UNKNOWN
     Route: 048

REACTIONS (4)
  - Poisoning deliberate [Fatal]
  - Completed suicide [Fatal]
  - Toxicity to various agents [Fatal]
  - Cardiac arrest [Fatal]
